FAERS Safety Report 5241234-6 (Version None)
Quarter: 2007Q1

REPORT INFORMATION
  Report Type: 
  Country: None (occurrence: None)
  Receive Date: 20070212
  Receipt Date: 20070212
  Transmission Date: 20070707
  Serious: Yes (Hospitalization)
  Sender: FDA-Public Use
  Company Number: None

PATIENT
  Age: 69 Year
  Sex: Male

DRUGS (11)
  1. HYDROCHLOROTHIAZIDE 25MG TAB [Suspect]
     Indication: HYPERTENSION
     Dates: start: 20061004, end: 20061028
  2. VALSARTAN [Suspect]
     Indication: HYPERTENSION
     Dates: start: 20061004
  3. ACCU-CHECK COMFORT CV-GLUCOSE- [Concomitant]
  4. ALBUTEROL [Concomitant]
  5. BACLOFEN [Concomitant]
  6. CLOPIDOGREL BISULFATE [Concomitant]
  7. FELODIPINE [Concomitant]
  8. GABAPENTIN [Concomitant]
  9. HYDROCHLOROTHIAZIDE [Concomitant]
  10. INSULIN NPH HUMAN 100 U/ML INJ NOVOLIN N [Concomitant]
  11. INSULIN REG HUMAN 100 U/ML INJ NOVOLIN R [Concomitant]

REACTIONS (5)
  - DIZZINESS [None]
  - ELECTROLYTE IMBALANCE [None]
  - HYPONATRAEMIA [None]
  - RENAL FAILURE [None]
  - SYNCOPE [None]
